FAERS Safety Report 15007513 (Version 2)
Quarter: 2018Q4

REPORT INFORMATION
  Report Type: Spontaneous
  Country: US (occurrence: US)
  Receive Date: 20180613
  Receipt Date: 20181016
  Transmission Date: 20190204
  Serious: No
  Sender: FDA-Public Use
  Company Number: US-PFIZER INC-2018237858

PATIENT
  Age: 52 Year
  Sex: Female

DRUGS (1)
  1. XELJANZ XR [Suspect]
     Active Substance: TOFACITINIB CITRATE
     Indication: RHEUMATOID ARTHRITIS
     Dosage: 11 MG, 1X/DAY
     Route: 048
     Dates: start: 20170612

REACTIONS (5)
  - Inflammatory marker increased [Unknown]
  - Malaise [Unknown]
  - Drug ineffective [Unknown]
  - Bronchitis [Unknown]
  - Finger deformity [Unknown]

NARRATIVE: CASE EVENT DATE: 20181002
